FAERS Safety Report 5314799-3 (Version None)
Quarter: 2007Q2

REPORT INFORMATION
  Report Type: 
  Country: None (occurrence: None)
  Receive Date: 20070502
  Receipt Date: 20070427
  Transmission Date: 20071010
  Serious: Yes (Life-Threatening, Hospitalization)
  Sender: FDA-Public Use
  Company Number: JP-GLAXOSMITHKLINE-B0468323A

PATIENT
  Age: 77 Year
  Sex: Female
  Weight: 45 kg

DRUGS (4)
  1. ZANTAC [Suspect]
     Indication: GASTRITIS
     Dosage: 150MG TWICE PER DAY
     Route: 048
     Dates: start: 20061213, end: 20070405
  2. CYANOCOBALAMIN [Concomitant]
     Indication: MEDICAL DIET
     Route: 048
     Dates: start: 20060111, end: 20070405
  3. VITAMEDIN [Concomitant]
     Indication: MEDICAL DIET
     Route: 048
     Dates: start: 20060111, end: 20070405
  4. MUCOSTA [Concomitant]
     Indication: GASTRITIS
     Route: 048
     Dates: start: 20060111, end: 20070405

REACTIONS (4)
  - CONVULSIONS LOCAL [None]
  - DYSSTASIA [None]
  - HYPOAESTHESIA [None]
  - RHABDOMYOLYSIS [None]
